FAERS Safety Report 4496848-8 (Version None)
Quarter: 2004Q4

REPORT INFORMATION
  Report Type: 
  Country: None (occurrence: None)
  Receive Date: 20041109
  Receipt Date: 20041013
  Transmission Date: 20050328
  Serious: Yes (Death)
  Sender: FDA-Public Use
  Company Number: JP-GLAXOSMITHKLINE-B0348457A

PATIENT
  Age: 48 Year
  Sex: Male
  Weight: 63 kg

DRUGS (9)
  1. PAXIL [Suspect]
     Indication: DEPRESSION
     Route: 048
     Dates: start: 20020907, end: 20040725
  2. LENDORMIN [Concomitant]
     Route: 048
  3. ISALON [Concomitant]
     Indication: GASTRITIS
     Dosage: 99.99MG PER DAY
     Route: 048
     Dates: start: 20021023, end: 20040725
  4. MYSLEE [Concomitant]
     Indication: INSOMNIA
     Dosage: 10MG PER DAY
     Route: 048
     Dates: start: 20040129, end: 20040725
  5. DORAL [Concomitant]
     Route: 048
     Dates: start: 20040101
  6. MEKITACK [Concomitant]
     Indication: NECK PAIN
     Dosage: .99MG PER DAY
     Route: 048
     Dates: start: 20020928, end: 20040725
  7. DEPAS [Concomitant]
     Indication: INSOMNIA
     Dosage: .5MG PER DAY
     Route: 048
     Dates: start: 20040327, end: 20040725
  8. SYLLABLE [Concomitant]
     Indication: NECK PAIN
     Dosage: 60MG PER DAY
     Route: 048
     Dates: start: 20020928, end: 20040725
  9. CINBERAMIN [Concomitant]
     Indication: INSOMNIA
     Dosage: .25MG PER DAY
     Route: 048
     Dates: start: 20020917, end: 20040124

REACTIONS (14)
  - ASTHENIA [None]
  - AUTONOMIC NEUROPATHY [None]
  - COMPLETED SUICIDE [None]
  - CONSTIPATION [None]
  - DEPRESSED LEVEL OF CONSCIOUSNESS [None]
  - DYSURIA [None]
  - FEELING ABNORMAL [None]
  - GAIT DISTURBANCE [None]
  - INSOMNIA [None]
  - MEMORY IMPAIRMENT [None]
  - MENTAL IMPAIRMENT [None]
  - POLLAKIURIA [None]
  - SKIN ODOUR ABNORMAL [None]
  - THINKING ABNORMAL [None]
